FAERS Safety Report 18505205 (Version 1)
Quarter: 2020Q4

REPORT INFORMATION
  Report Type: Spontaneous
  Country: CH (occurrence: CH)
  Receive Date: 20201116
  Receipt Date: 20201116
  Transmission Date: 20210114
  Serious: Yes (Other)
  Sender: FDA-Public Use
  Company Number: CH-ABBVIE-20K-151-3651102-00

PATIENT
  Age: 68 Year
  Sex: Male

DRUGS (3)
  1. DULOXETIN [Concomitant]
     Active Substance: DULOXETINE
     Indication: PRODUCT USED FOR UNKNOWN INDICATION
  2. METFORMIN [Concomitant]
     Active Substance: METFORMIN HYDROCHLORIDE
     Indication: DIABETES MELLITUS
  3. LUCRIN DEPOT [Suspect]
     Active Substance: LEUPROLIDE ACETATE
     Indication: PROSTATE CANCER
     Route: 065
     Dates: start: 201801, end: 2020

REACTIONS (14)
  - Injection site necrosis [Recovering/Resolving]
  - Local reaction [Recovering/Resolving]
  - Drug intolerance [Recovering/Resolving]
  - Skin discolouration [Recovering/Resolving]
  - Injection site inflammation [Recovering/Resolving]
  - Skin induration [Recovering/Resolving]
  - Injection site reaction [Recovering/Resolving]
  - Injection site abscess [Recovering/Resolving]
  - Injection site induration [Recovering/Resolving]
  - Foreign body reaction [Recovering/Resolving]
  - Drug hypersensitivity [Recovering/Resolving]
  - Injection site exfoliation [Recovering/Resolving]
  - Injection site pain [Recovered/Resolved]
  - Injection site granuloma [Recovering/Resolving]

NARRATIVE: CASE EVENT DATE: 202003
